FAERS Safety Report 5648024-0 (Version None)
Quarter: 2008Q1

REPORT INFORMATION
  Report Type: 
  Country: None (occurrence: None)
  Receive Date: 20080229
  Receipt Date: 20080229
  Transmission Date: 20080703
  Serious: Yes (Hospitalization)
  Sender: FDA-Public Use
  Company Number: None

PATIENT
  Age: 62 Year
  Sex: Male

DRUGS (1)
  1. NITROGLYCERIN [Suspect]
     Indication: CHEST PAIN
     Dosage: 0.4MG  ONCE  SUBLINGUAL
     Route: 060
     Dates: start: 20071202, end: 20071202

REACTIONS (2)
  - BLOOD PRESSURE DECREASED [None]
  - SHOCK [None]
